FAERS Safety Report 8867509 (Version 1)
Quarter: 2012Q4

REPORT INFORMATION
  Report Type: 
  Country: US (occurrence: US)
  Receive Date: 20121025
  Receipt Date: 20121025
  Transmission Date: 20130627
  Serious: No
  Sender: FDA-Public Use
  Company Number: US-AMGEN-USASP2012017183

PATIENT
  Age: 58 Year
  Sex: Female

DRUGS (2)
  1. ENBREL [Suspect]
     Indication: RHEUMATOID ARTHRITIS
     Dosage: 50 mg, qwk
     Dates: start: 201202
  2. AZITHROMYCIN [Concomitant]
     Dosage: 250 mg, UNK
     Dates: start: 20120310

REACTIONS (3)
  - Cough [Unknown]
  - Bronchitis [Unknown]
  - Pyrexia [Unknown]
